FAERS Safety Report 5847670-9 (Version None)
Quarter: 2008Q3

REPORT INFORMATION
  Report Type: 
  Country: None (occurrence: None)
  Receive Date: 20080815
  Receipt Date: 20080815
  Transmission Date: 20090109
  Serious: No
  Sender: FDA-Public Use
  Company Number: None

PATIENT
  Age: 73 Year
  Sex: Female
  Weight: 69.4003 kg

DRUGS (15)
  1. CHANTIX [Suspect]
     Indication: SMOKING CESSATION THERAPY
     Dosage: 1 WK OF 1 MG 1 X DAY 1ST WEEK ONCE PER DAY ORAL THEN: 2 MG 1X DAY ONCE 2ND WEEK ORAL
     Route: 048
     Dates: start: 20080601
  2. PREDNISONE TAB [Concomitant]
  3. DILATIAZEM [Concomitant]
  4. GEMFIBROZIL [Concomitant]
  5. ALLOPURINOL [Concomitant]
  6. LEVOTHYROXINE SODIUM [Concomitant]
  7. JANUVIA [Concomitant]
  8. PHOSLO [Concomitant]
  9. PROTONIX [Concomitant]
  10. ASPIRIN [Concomitant]
  11. COUMADIN [Concomitant]
  12. BENADRYL [Concomitant]
  13. NASONEX [Concomitant]
  14. PATONAL [Concomitant]
  15. TYLENOL (CAPLET) [Concomitant]

REACTIONS (6)
  - ANAPHYLACTIC REACTION [None]
  - BLOOD GLUCOSE INCREASED [None]
  - DRUG INEFFECTIVE [None]
  - FLUID RETENTION [None]
  - NAUSEA [None]
  - SWELLING [None]
